FAERS Safety Report 10256003 (Version 1)
Quarter: 2014Q2

REPORT INFORMATION
  Report Type: Spontaneous
  Country: US (occurrence: US)
  Receive Date: 20140624
  Receipt Date: 20140624
  Transmission Date: 20141212
  Serious: Yes (Other)
  Sender: FDA-Public Use
  Company Number: US-PFIZER INC-2014169920

PATIENT
  Sex: Male

DRUGS (1)
  1. VIAGRA [Suspect]
     Dosage: 150 MG, UNK (3 50 MG PILLS)

REACTIONS (3)
  - Extra dose administered [Unknown]
  - Erection increased [Unknown]
  - Dysstasia [Unknown]
